FAERS Safety Report 9514059 (Version 1)
Quarter: 2013Q3

REPORT INFORMATION
  Report Type: Spontaneous
  Country: IN (occurrence: IN)
  Receive Date: 20130910
  Receipt Date: 20130910
  Transmission Date: 20140515
  Serious: Yes (Other)
  Sender: FDA-Public Use
  Company Number: PHHY2013IN096636

PATIENT
  Age: 28 Year
  Sex: Female

DRUGS (12)
  1. CHLORAMPHENICOL [Suspect]
  2. NORFLOXACIN [Suspect]
  3. MEROPENEM [Suspect]
     Dosage: 500 MG, UNK
     Route: 042
  4. VANCOMYCIN [Suspect]
     Dosage: 1 G, UNK
     Route: 042
  5. AMIKACIN [Suspect]
     Route: 042
  6. ISONIAZID [Suspect]
     Indication: TUBERCULOSIS
  7. RIFAMPICIN [Suspect]
     Indication: TUBERCULOSIS
  8. ETHAMBUTOL [Suspect]
     Indication: TUBERCULOSIS
  9. PYRAZINAMIDE [Suspect]
     Indication: TUBERCULOSIS
  10. PIPERACILLIN+TAZOBACTAM [Suspect]
     Indication: ESCHERICHIA INFECTION
  11. AMPICILLIN [Suspect]
     Indication: ENTEROCOCCAL INFECTION
  12. PYRIDOXINE [Suspect]
     Indication: TUBERCULOSIS

REACTIONS (5)
  - Renal impairment [Recovered/Resolved]
  - Oligohydramnios [Recovered/Resolved]
  - Premature delivery [Recovered/Resolved]
  - Blood creatinine increased [Recovered/Resolved]
  - Maternal exposure during pregnancy [Unknown]
